FAERS Safety Report 8586698-5 (Version None)
Quarter: 2012Q3

REPORT INFORMATION
  Report Type: 
  Country: None (occurrence: None)
  Receive Date: 20120810
  Receipt Date: 20120807
  Transmission Date: 20120928
  Serious: Yes (Death)
  Sender: FDA-Public Use
  Company Number: US-CELGENEUS-163-21880-12071809

PATIENT
  Sex: Male

DRUGS (8)
  1. ARMODAFINIL [Concomitant]
     Route: 065
     Dates: start: 20120601
  2. FENTANYL [Concomitant]
     Route: 065
  3. DEXAMETHASONE [Concomitant]
     Route: 065
  4. MORPHINE [Concomitant]
     Route: 065
  5. PREDNISONE TAB [Concomitant]
     Dosage: 7.5 MILLIGRAM
     Route: 048
     Dates: start: 20110517
  6. PRAVASTATIN SODIUM [Concomitant]
     Dosage: 40 MILLIGRAM
     Route: 048
     Dates: start: 20110517
  7. REVLIMID [Suspect]
     Indication: MULTIPLE MYELOMA
     Dosage: 25 MILLIGRAM
     Route: 048
     Dates: start: 20120413, end: 20120710
  8. GLEEVEC [Concomitant]
     Route: 065

REACTIONS (1)
  - MULTIPLE MYELOMA [None]
